FAERS Safety Report 22805727 (Version 3)
Quarter: 2024Q1

REPORT INFORMATION
  Report Type: Report from Study
  Country: US (occurrence: US)
  Receive Date: 20230809
  Receipt Date: 20240328
  Transmission Date: 20240410
  Serious: No
  Sender: FDA-Public Use
  Company Number: US-SA-SAC20230804000854

PATIENT
  Age: 42 Year
  Sex: Female

DRUGS (1)
  1. AGALSIDASE BETA [Suspect]
     Active Substance: AGALSIDASE BETA
     Indication: Fabry^s disease
     Dosage: 110 MG, QOW
     Route: 042
     Dates: start: 20200414

REACTIONS (2)
  - Diarrhoea [Recovering/Resolving]
  - Surgery [Unknown]
